FAERS Safety Report 5951316-9 (Version None)
Quarter: 2008Q4

REPORT INFORMATION
  Report Type: 
  Country: None (occurrence: None)
  Receive Date: 20081022
  Receipt Date: 20080721
  Transmission Date: 20090506
  Serious: No
  Sender: FDA-Public Use
  Company Number: ALL1-2008-02060

PATIENT
  Age: 50 Year
  Sex: Male
  Weight: 96.4 kg

DRUGS (9)
  1. VYVANSE [Suspect]
     Indication: ATTENTION DEFICIT/HYPERACTIVITY DISORDER
     Dosage: 50 MG, 1X/DAY;QD, ORAL
     Route: 048
     Dates: start: 20080718
  2. LISINOPRIL [Concomitant]
  3. PLAVIX [Concomitant]
  4. CRESTOR [Concomitant]
  5. PRILOSEC /00661201/ (OMEPRAZOLE) [Concomitant]
  6. NIASPAN [Concomitant]
  7. LEVOTHYROXINE SODIUM [Concomitant]
  8. ASPIRIN [Concomitant]
  9. HUMALOG /00030501/ (INSULIN) [Concomitant]

REACTIONS (1)
  - HYPOGLYCAEMIA [None]
